FAERS Safety Report 5973832-6 (Version None)
Quarter: 2008Q4

REPORT INFORMATION
  Report Type: 
  Country: None (occurrence: None)
  Receive Date: 20081201
  Receipt Date: 20081118
  Transmission Date: 20090506
  Serious: No
  Sender: FDA-Public Use
  Company Number: FR-ROCHE-595494

PATIENT
  Sex: Female

DRUGS (1)
  1. ROCEPHIN [Suspect]
     Indication: BRONCHITIS
     Dosage: STRENGTH FORMULATION REPORTED: INJECTABLE SOLUTION.
     Route: 030
     Dates: start: 20081029, end: 20081029

REACTIONS (2)
  - DYSKINESIA [None]
  - INJECTION SITE PAIN [None]
